FAERS Safety Report 25597449 (Version 1)
Quarter: 2025Q3

REPORT INFORMATION
  Report Type: Spontaneous
  Country: EU (occurrence: EU)
  Receive Date: 20250723
  Receipt Date: 20250723
  Transmission Date: 20251020
  Serious: Yes (Other)
  Sender: PURDUE
  Company Number: EU-PURDUE-USA-2025-0319137

PATIENT
  Age: 47 Year
  Sex: Male

DRUGS (4)
  1. NORSPAN [Suspect]
     Active Substance: BUPRENORPHINE
     Indication: Pain
     Route: 062
     Dates: start: 20250521, end: 20250528
  2. NORSPAN [Suspect]
     Active Substance: BUPRENORPHINE
     Route: 062
     Dates: start: 20250528, end: 20250603
  3. NORSPAN [Suspect]
     Active Substance: BUPRENORPHINE
     Route: 065
     Dates: start: 20250603, end: 20250630
  4. OXYCODONE HYDROCHLORIDE [Concomitant]
     Active Substance: OXYCODONE HYDROCHLORIDE
     Indication: Product used for unknown indication
     Route: 065

REACTIONS (6)
  - Muscle spasms [Recovered/Resolved]
  - Autonomic dysreflexia [Recovered/Resolved]
  - Nausea [Recovered/Resolved]
  - Malaise [Recovered/Resolved]
  - Vomiting [Recovered/Resolved]
  - Palpitations [Recovered/Resolved]

NARRATIVE: CASE EVENT DATE: 20250528
